FAERS Safety Report 8350069-7 (Version None)
Quarter: 2012Q2

REPORT INFORMATION
  Report Type: 
  Country: None (occurrence: None)
  Receive Date: 20120510
  Receipt Date: 20120504
  Transmission Date: 20120825
  Serious: No
  Sender: FDA-Public Use
  Company Number: US-PFIZER INC-2012110591

PATIENT
  Sex: Female
  Weight: 74.83 kg

DRUGS (5)
  1. LEVOTHYROXINE SODIUM [Concomitant]
     Indication: THYROID DISORDER
     Dosage: 0.05 MG, UNK
  2. QUINAPRIL HCL [Suspect]
     Indication: BLOOD PRESSURE ABNORMAL
     Dosage: 20 MG, DAILY
  3. QUINAPRIL HCL [Suspect]
     Dosage: 20 MG, DAILY
     Dates: start: 20100101
  4. LOVAZA [Concomitant]
     Indication: CARDIOVASCULAR EVENT PROPHYLAXIS
     Dosage: 1 G, UNK
     Route: 048
  5. DYAZIDE [Concomitant]
     Indication: BLOOD PRESSURE ABNORMAL
     Dosage: 37.5/25MG, DAILY

REACTIONS (2)
  - DRUG INEFFECTIVE [None]
  - BLOOD PRESSURE ABNORMAL [None]
